FAERS Safety Report 6673022-8 (Version None)
Quarter: 2010Q2

REPORT INFORMATION
  Report Type: 
  Country: None (occurrence: None)
  Receive Date: 20100408
  Receipt Date: 20100325
  Transmission Date: 20101027
  Serious: Yes (Death, Life-Threatening, Hospitalization)
  Sender: FDA-Public Use
  Company Number: B0645855A

PATIENT
  Sex: Female

DRUGS (4)
  1. KEPPRA [Suspect]
     Indication: DRUG USE FOR UNKNOWN INDICATION
     Dosage: 500MG TWICE PER DAY
     Route: 042
     Dates: start: 20100203, end: 20100304
  2. CLAFORAN [Suspect]
     Indication: BRAIN ABSCESS
     Dosage: 2G SIX TIMES PER DAY
     Route: 042
     Dates: start: 20100204, end: 20100305
  3. FLAGYL [Suspect]
     Indication: BRAIN ABSCESS
     Dosage: 500MG THREE TIMES PER DAY
     Route: 042
     Dates: start: 20100203, end: 20100305
  4. VANCOMYCIN [Concomitant]
     Route: 042
     Dates: start: 20100203, end: 20100204

REACTIONS (4)
  - AGRANULOCYTOSIS [None]
  - CNS VENTRICULITIS [None]
  - MARROW HYPERPLASIA [None]
  - MEGAKARYOCYTES ABNORMAL [None]
